FAERS Safety Report 16474468 (Version 1)
Quarter: 2019Q2

REPORT INFORMATION
  Report Type: Spontaneous
  Country: US (occurrence: US)
  Receive Date: 20190625
  Receipt Date: 20190625
  Transmission Date: 20190711
  Serious: No
  Sender: FDA-Public Use
  Company Number: US-SUNOVION-2019SUN002510

PATIENT

DRUGS (3)
  1. SOMA [Concomitant]
     Active Substance: CARISOPRODOL
  2. LATUDA [Suspect]
     Active Substance: LURASIDONE HYDROCHLORIDE
     Route: 048
  3. NAPROXEN. [Concomitant]
     Active Substance: NAPROXEN

REACTIONS (4)
  - Dyskinesia [Unknown]
  - Tremor [Unknown]
  - Anger [Unknown]
  - Pain [Unknown]
